FAERS Safety Report 4718721-X (Version None)
Quarter: 2005Q3

REPORT INFORMATION
  Report Type: 
  Country: None (occurrence: None)
  Receive Date: 20050719
  Receipt Date: 20050706
  Transmission Date: 20060218
  Serious: Yes (Death)
  Sender: FDA-Public Use
  Company Number: 212001

PATIENT
  Age: 69 Year
  Sex: Female
  Weight: 47.2 kg

DRUGS (18)
  1. AVASTIN [Suspect]
     Indication: SMALL CELL LUNG CANCER STAGE UNSPECIFIED
     Dosage: 572 MG, INTRAVENOUS
     Route: 042
     Dates: start: 20040324, end: 20040802
  2. RADIATION (RADIATION THERAPY) [Concomitant]
  3. ATENOLOL [Concomitant]
  4. PLAVIX [Concomitant]
  5. DURAGESIC-100 [Concomitant]
  6. NEURONTIN [Concomitant]
  7. AVANDAMET (METFORMIN, ROSIGLITAZONE MALEATE) [Concomitant]
  8. MORPHINE [Concomitant]
  9. PROTONIX [Concomitant]
  10. LEVOFLOXACIN [Concomitant]
  11. COMPAZINE SUPPOSITORIES (PROCHLORPERAZINE) [Concomitant]
  12. LEVALBUTEROL (LEVALBUTEROL HYDROCHLORIDE) [Concomitant]
  13. SCOPOLAMINE PATCH (SCOPOLAMINE NOS) [Concomitant]
  14. MOBIC [Concomitant]
  15. XANAX [Concomitant]
  16. OXYCONTIN [Concomitant]
  17. CARBOPLATIN [Concomitant]
  18. IRINOTECAN HCL [Concomitant]

REACTIONS (16)
  - CHILLS [None]
  - DISEASE PROGRESSION [None]
  - DYSPNOEA [None]
  - EPISTAXIS [None]
  - FEELING ABNORMAL [None]
  - FISTULA [None]
  - HAEMOPTYSIS [None]
  - HAEMORRHAGE [None]
  - IMPAIRED HEALING [None]
  - NAUSEA [None]
  - OESOPHAGEAL ULCER [None]
  - PRODUCTIVE COUGH [None]
  - PULSE ABSENT [None]
  - RESPIRATORY FAILURE [None]
  - VOMITING [None]
  - WHITE BLOOD CELL COUNT INCREASED [None]
